FAERS Safety Report 5171517-X (Version None)
Quarter: 2006Q4

REPORT INFORMATION
  Report Type: 
  Country: None (occurrence: None)
  Receive Date: 20061213
  Receipt Date: 20060809
  Transmission Date: 20070319
  Serious: Yes (Hospitalization)
  Sender: FDA-Public Use
  Company Number: US-AMGEN-US189449

PATIENT
  Sex: Male

DRUGS (2)
  1. ENBREL [Suspect]
     Indication: PSORIATIC ARTHROPATHY
     Route: 058
     Dates: start: 20030301
  2. METHOTREXATE [Concomitant]

REACTIONS (6)
  - ABDOMINAL PAIN UPPER [None]
  - DYSPEPSIA [None]
  - LIVER FUNCTION TEST ABNORMAL [None]
  - PANCREATIC CYST [None]
  - PANCREATITIS [None]
  - RENAL CELL CARCINOMA STAGE UNSPECIFIED [None]
